FAERS Safety Report 8503018-2 (Version None)
Quarter: 2012Q3

REPORT INFORMATION
  Report Type: 
  Country: None (occurrence: None)
  Receive Date: 20120711
  Receipt Date: 20120627
  Transmission Date: 20120928
  Serious: Yes (Other)
  Sender: FDA-Public Use
  Company Number: CA-MYLANLABS-2012S1013543

PATIENT
  Age: 55 Year
  Sex: Female

DRUGS (5)
  1. ALENDRONATE SODIUM [Suspect]
     Indication: OSTEOPOROSIS
     Dosage: 70MG WEEKLY
     Route: 048
     Dates: start: 20060101, end: 20090101
  2. CALCIUM [Concomitant]
     Indication: OSTEOPOROSIS
     Route: 048
     Dates: start: 20060101
  3. COLECALCIFEROL [Concomitant]
     Dosage: 1000 UNITS DAILY
     Route: 048
     Dates: start: 20060101
  4. ZOLEDRONIC ACID [Suspect]
     Indication: OSTEOPOROSIS
     Route: 041
     Dates: start: 20090201, end: 20100201
  5. COLECALCIFEROL [Concomitant]
     Indication: OSTEOPOROSIS
     Dosage: 500 UNITS DAILY
     Route: 048
     Dates: start: 20060101

REACTIONS (5)
  - TREATMENT NONCOMPLIANCE [None]
  - PAIN IN EXTREMITY [None]
  - FEMUR FRACTURE [None]
  - HYPERPHOSPHATAEMIA [None]
  - HYPOPHOSPHATAEMIA [None]
